FAERS Safety Report 10025692 (Version 1)
Quarter: 2014Q1

REPORT INFORMATION
  Report Type: Spontaneous
  Country: GB (occurrence: None)
  Receive Date: 20140314
  Receipt Date: 20140314
  Transmission Date: 20141002
  Serious: Yes (Disabling)
  Sender: FDA-Public Use
  Company Number: AUR-APL-2014-02651

PATIENT
  Age: 67 Year
  Sex: Male
  Weight: 77 kg

DRUGS (14)
  1. ALENDRONIC ACID [Suspect]
     Indication: PRODUCT USED FOR UNKNOWN INDICATION
     Route: 048
     Dates: start: 20131104
  2. AMITRIPTYLENE HYDROCHLORIDE (AMITRIPTYLINE HYDROCHLORIDE) [Concomitant]
  3. AMOXICILLIN (AMOXICILLIN) [Concomitant]
  4. CALCIUM CARBONATE (CALCIUM CARBOINATE) [Concomitant]
  5. CO-COMADOL (PANADEINE CO) [Concomitant]
  6. DIAZEPAM (DIAZEPAM) [Concomitant]
  7. GAVISCON ADVANCE (GAVISCON ADVANCE) [Concomitant]
  8. HYDROXYZINE (HYDROYZINE) [Concomitant]
  9. PANTOPRAZOLE (PANTOPRAZOLE) [Concomitant]
  10. PANTOPRAZOLE (PANTOPRAZOLE) [Concomitant]
  11. RANITIDINE (RANITIDINE) [Concomitant]
  12. SALMETEROL (SALMETEROL) [Concomitant]
  13. TIOTROPIUM (TIOTROPIUM) [Concomitant]
  14. ZOPICLONE (ZOPICLONE) [Concomitant]

REACTIONS (1)
  - Swelling [None]
